FAERS Safety Report 11748166 (Version 2)
Quarter: 2015Q4

REPORT INFORMATION
  Report Type: Spontaneous
  Country: GB (occurrence: GB)
  Receive Date: 20151117
  Receipt Date: 20151203
  Transmission Date: 20160304
  Serious: Yes (Hospitalization)
  Sender: FDA-Public Use
  Company Number: PHHY2015GB144798

PATIENT

DRUGS (4)
  1. GABAPENTIN. [Suspect]
     Active Substance: GABAPENTIN
     Route: 065
  2. HERCEPTIN [Suspect]
     Active Substance: TRASTUZUMAB
     Indication: PRODUCT USED FOR UNKNOWN INDICATION
     Dosage: 600 MG, UNK
     Route: 058
  3. GABAPENTIN. [Suspect]
     Active Substance: GABAPENTIN
     Indication: PRODUCT USED FOR UNKNOWN INDICATION
     Route: 065
  4. METFORMIN [Concomitant]
     Active Substance: METFORMIN HYDROCHLORIDE
     Indication: PRODUCT USED FOR UNKNOWN INDICATION
     Route: 065

REACTIONS (28)
  - Hypoaesthesia [Not Recovered/Not Resolved]
  - Fibromyalgia [Unknown]
  - Sleep disorder [Not Recovered/Not Resolved]
  - Back pain [Recovering/Resolving]
  - Dyspnoea exertional [Unknown]
  - Sputum discoloured [Unknown]
  - Rash [Unknown]
  - Lower respiratory tract infection [Unknown]
  - Sleep disorder [Unknown]
  - Asthenia [Not Recovered/Not Resolved]
  - Pain in extremity [Unknown]
  - Sensory disturbance [Not Recovered/Not Resolved]
  - Vertigo [Unknown]
  - Dry mouth [Unknown]
  - Glossodynia [Unknown]
  - Thermal burn [Unknown]
  - Wound [Unknown]
  - Blood glucose increased [Unknown]
  - Vaginal haemorrhage [Unknown]
  - Nausea [Unknown]
  - Diarrhoea [Not Recovered/Not Resolved]
  - Irritable bowel syndrome [Unknown]
  - Constipation [Not Recovered/Not Resolved]
  - Lymphoedema [Unknown]
  - Paraesthesia [Not Recovered/Not Resolved]
  - Dyspnoea [Unknown]
  - Arthralgia [Unknown]
  - Feeling abnormal [Unknown]

NARRATIVE: CASE EVENT DATE: 20150610
